FAERS Safety Report 16100487 (Version 1)
Quarter: 2019Q1

REPORT INFORMATION
  Report Type: Spontaneous
  Country: US (occurrence: US)
  Receive Date: 20190321
  Receipt Date: 20190321
  Transmission Date: 20190418
  Serious: No
  Sender: FDA-Public Use
  Company Number: US-BAYER-2019-054726

PATIENT
  Age: 64 Year
  Sex: Female
  Weight: 68.03 kg

DRUGS (1)
  1. MIRALAX [Suspect]
     Active Substance: POLYETHYLENE GLYCOL 3350
     Indication: SURGERY
     Dosage: UNK, ONE CAP FULL DAILY
     Route: 065

REACTIONS (6)
  - Drug ineffective for unapproved indication [Unknown]
  - Poor quality product administered [Unknown]
  - Product use in unapproved indication [Unknown]
  - Product physical issue [None]
  - Off label use [Unknown]
  - Product solubility abnormal [None]
